FAERS Safety Report 4674914-1 (Version None)
Quarter: 2005Q2

REPORT INFORMATION
  Report Type: 
  Country: None (occurrence: None)
  Receive Date: 20050524
  Receipt Date: 20050510
  Transmission Date: 20051028
  Serious: Yes (Hospitalization, Disabling)
  Sender: FDA-Public Use
  Company Number: 2005-00756

PATIENT
  Age: 67 Year
  Sex: Female

DRUGS (6)
  1. IMMUCYST [Suspect]
     Indication: BLADDER CANCER
     Dosage: 81.0 MG, I. VES, BLADDER
     Dates: start: 20040505, end: 20040623
  2. LOXOPROFEN SODIUM [Concomitant]
  3. GLIBENCLAMIDE [Concomitant]
  4. ATORVASTATIN CALCIUM [Concomitant]
  5. CLOTIAZEPAM [Concomitant]
  6. TRIAZOLAM [Concomitant]

REACTIONS (4)
  - BLADDER CANCER RECURRENT [None]
  - BLADDER CONSTRICTION [None]
  - CYSTITIS [None]
  - POLLAKIURIA [None]
